FAERS Safety Report 12595919 (Version 2)
Quarter: 2016Q3

REPORT INFORMATION
  Report Type: Report from Study
  Country: CN (occurrence: CN)
  Receive Date: 20160727
  Receipt Date: 20160809
  Transmission Date: 20161109
  Serious: Yes (Death)
  Sender: FDA-Public Use
  Company Number: CN-ACTELION-A-CH2016-139455

PATIENT
  Age: 36 Year
  Sex: Male

DRUGS (2)
  1. CIALIS [Concomitant]
     Active Substance: TADALAFIL
  2. TRACLEER [Suspect]
     Active Substance: BOSENTAN
     Indication: PULMONARY ARTERIAL HYPERTENSION
     Dosage: 125 MG, BID
     Route: 048
     Dates: start: 2015, end: 201607

REACTIONS (1)
  - Haemoptysis [Fatal]
